FAERS Safety Report 22048123 (Version 1)
Quarter: 2023Q1

REPORT INFORMATION
  Report Type: Spontaneous
  Country: US (occurrence: US)
  Receive Date: 20230301
  Receipt Date: 20230301
  Transmission Date: 20230418
  Serious: No
  Sender: FDA-Public Use
  Company Number: US-TEVA-2023-US-2858970

PATIENT

DRUGS (1)
  1. AUSTEDO [Suspect]
     Active Substance: DEUTETRABENAZINE
     Indication: Tic
     Dosage: 6 MILLIGRAM DAILY;
     Route: 065

REACTIONS (4)
  - Tic [Unknown]
  - Off label use [Unknown]
  - Inability to afford medication [Unknown]
  - Drug effective for unapproved indication [Unknown]
